FAERS Safety Report 4660523-7 (Version None)
Quarter: 2005Q2

REPORT INFORMATION
  Report Type: 
  Country: None (occurrence: None)
  Receive Date: 20050427
  Receipt Date: 20050323
  Transmission Date: 20051028
  Serious: No
  Sender: FDA-Public Use
  Company Number: 212758

PATIENT
  Age: 32 Year
  Sex: Female
  Weight: 63 kg

DRUGS (10)
  1. XOLAIR [Suspect]
     Indication: ASTHMA
     Dosage: 300 MG, Q2W, UNK
     Dates: start: 20040812
  2. ADVAIR (SALMETEROL XINAFOATE, FLUTICASONE PROPIONATE) [Concomitant]
  3. QVAR (BECLOMETHASONE DIPROPIONATE) [Concomitant]
  4. RHINOCORT [Concomitant]
  5. SINGULAIR [Concomitant]
  6. ALLEGRA [Concomitant]
  7. ASTELIN [Concomitant]
  8. ZYRTEC [Concomitant]
  9. EFFEXOR [Concomitant]
  10. ALBUTEROL (ALBUTEROL, ALBUTEROL SULFATE) [Concomitant]

REACTIONS (1)
  - PAIN IN EXTREMITY [None]
